FAERS Safety Report 12321465 (Version 3)
Quarter: 2016Q3

REPORT INFORMATION
  Report Type: Spontaneous
  Country: NL (occurrence: NL)
  Receive Date: 20160502
  Receipt Date: 20160711
  Transmission Date: 20161109
  Serious: Yes (Death, Hospitalization)
  Sender: FDA-Public Use
  Company Number: NL-ACTELION-A-CH2015-120969

PATIENT
  Age: 62 Year
  Sex: Male

DRUGS (2)
  1. VELETRI [Suspect]
     Active Substance: EPOPROSTENOL
     Indication: PULMONARY ARTERIAL HYPERTENSION
     Dosage: UNK , UNK
     Route: 042
     Dates: start: 20140425, end: 20160630
  2. TRACLEER [Suspect]
     Active Substance: BOSENTAN
     Indication: PULMONARY ARTERIAL HYPERTENSION
     Dosage: 125 MG, BID
     Route: 048
     Dates: start: 20150122, end: 20160630

REACTIONS (9)
  - Malaise [Recovering/Resolving]
  - Therapy cessation [Recovered/Resolved]
  - Device infusion issue [Unknown]
  - Blood iron decreased [Recovered/Resolved]
  - Fluid retention [Recovered/Resolved]
  - Skin discolouration [Unknown]
  - Death [Fatal]
  - Incorrect drug administration rate [Unknown]
  - Medical observation normal [Unknown]

NARRATIVE: CASE EVENT DATE: 20150711
